FAERS Safety Report 5087099-7 (Version None)
Quarter: 2006Q3

REPORT INFORMATION
  Report Type: 
  Country: None (occurrence: None)
  Receive Date: 20060821
  Receipt Date: 20060810
  Transmission Date: 20061208
  Serious: Yes (Hospitalization)
  Sender: FDA-Public Use
  Company Number: 2006-01647

PATIENT
  Age: 76 Year
  Sex: Female

DRUGS (10)
  1. VELCADE [Suspect]
     Indication: MULTIPLE MYELOMA
     Dosage: INTRAVENOUS
     Route: 042
     Dates: start: 20050101, end: 20060101
  2. FLUOXETINE [Concomitant]
  3. CLOXAZOLAM (CLOXAZOLAM) [Concomitant]
  4. NOCTAL (PROPALLYLONAL) [Concomitant]
  5. TEGRETOL [Concomitant]
  6. ACYCLOVIR [Concomitant]
  7. OSCAL (CALCIUM CARBONATE) [Concomitant]
  8. AREDIA [Concomitant]
  9. PANTOPRAZOLE SODIUM [Concomitant]
  10. MICOSTATIN (NYSTATIN) [Concomitant]

REACTIONS (5)
  - CATHETER SITE INFECTION [None]
  - HALLUCINATION, AUDITORY [None]
  - HALLUCINATION, VISUAL [None]
  - KLEBSIELLA INFECTION [None]
  - PSYCHOTIC DISORDER [None]
